FAERS Safety Report 19375747 (Version 3)
Quarter: 2021Q2

REPORT INFORMATION
  Report Type: Report from Study
  Country: ES (occurrence: ES)
  Receive Date: 20210604
  Receipt Date: 20210622
  Transmission Date: 20210717
  Serious: Yes (Hospitalization)
  Sender: FDA-Public Use
  Company Number: ES-PFIZER INC-2021612375

PATIENT
  Age: 59 Year
  Sex: Male
  Weight: 43.5 kg

DRUGS (2)
  1. BINIMETINIB [Suspect]
     Active Substance: BINIMETINIB
     Indication: NON-SMALL CELL LUNG CANCER
     Dosage: TWICE DAILY, CONTINUOUS
     Route: 048
     Dates: start: 20200729, end: 20210514
  2. ENCORAFENIB [Suspect]
     Active Substance: ENCORAFENIB
     Indication: NON-SMALL CELL LUNG CANCER
     Dosage: ONCE DAILY CONTINUOUS
     Route: 048
     Dates: start: 20200729, end: 20210514

REACTIONS (1)
  - Oedema peripheral [Recovered/Resolved]

NARRATIVE: CASE EVENT DATE: 20210526
